FAERS Safety Report 18213513 (Version 1)
Quarter: 2020Q3

REPORT INFORMATION
  Report Type: Spontaneous
  Country: US (occurrence: US)
  Receive Date: 20200831
  Receipt Date: 20200831
  Transmission Date: 20201103
  Serious: No
  Sender: FDA-Public Use
  Company Number: None

PATIENT
  Age: 47 Year
  Sex: Female

DRUGS (11)
  1. POTASSIUM [Concomitant]
     Active Substance: POTASSIUM
  2. SYNTHROID [Concomitant]
     Active Substance: LEVOTHYROXINE SODIUM
  3. BENADRYL [Concomitant]
     Active Substance: DIPHENHYDRAMINE HYDROCHLORIDE
  4. VITAMIN D [Concomitant]
     Active Substance: VITAMIN D NOS
  5. XOLAIR [Concomitant]
     Active Substance: OMALIZUMAB
  6. LASIX [Concomitant]
     Active Substance: FUROSEMIDE
  7. LORAZEPAM. [Concomitant]
     Active Substance: LORAZEPAM
  8. SINGULAIR [Concomitant]
     Active Substance: MONTELUKAST SODIUM
  9. HUMIRA [Suspect]
     Active Substance: ADALIMUMAB
     Indication: GASTROENTERITIS
     Dosage: ?          OTHER FREQUENCY:EVERY OTHER WEEK;?
     Route: 058
     Dates: start: 20200208, end: 20200820
  10. FLORASTOR [Concomitant]
     Active Substance: SACCHAROMYCES CEREVISIAE
  11. PREDNISONE. [Concomitant]
     Active Substance: PREDNISONE

REACTIONS (1)
  - Systemic lupus erythematosus [None]

NARRATIVE: CASE EVENT DATE: 20200820
